FAERS Safety Report 21753361 (Version 1)
Quarter: 2022Q4

REPORT INFORMATION
  Report Type: Spontaneous
  Country: None (occurrence: PT)
  Receive Date: 20221220
  Receipt Date: 20221220
  Transmission Date: 20230113
  Serious: Yes (Hospitalization, Other)
  Sender: FDA-Public Use
  Company Number: PT-Therakind Limited-2135993

PATIENT
  Age: 4 Year
  Sex: Male

DRUGS (5)
  1. METHOTREXATE [Suspect]
     Active Substance: METHOTREXATE
     Indication: Acute lymphocytic leukaemia
  2. MERCAPTOPURINE [Suspect]
     Active Substance: MERCAPTOPURINE
  3. DEXAMETHASONE [Suspect]
     Active Substance: DEXAMETHASONE
  4. VINCRISTINE [Suspect]
     Active Substance: VINCRISTINE
  5. ASPARAGINASE [Suspect]
     Active Substance: ASPARAGINASE

REACTIONS (6)
  - Hypoalbuminaemia [Unknown]
  - Pyrexia [Unknown]
  - Diarrhoea [Unknown]
  - Cholecystitis acute [Unknown]
  - Pancreatitis acute [Unknown]
  - Coagulopathy [Unknown]
